FAERS Safety Report 4644942-0 (Version None)
Quarter: 2005Q2

REPORT INFORMATION
  Report Type: 
  Country: None (occurrence: None)
  Receive Date: 20050422
  Receipt Date: 20050413
  Transmission Date: 20051028
  Serious: Yes (Hospitalization)
  Sender: FDA-Public Use
  Company Number: 213086

PATIENT
  Age: 43 Year
  Sex: Male

DRUGS (5)
  1. EFALIZUMAB (EFALIZUMAB) PWDR + SOLVENT, INJECTION SOLN, 125 MG [Suspect]
     Indication: HYPERTENSION
     Dosage: 1 MG/KG, 1 WEEK, SUBCUTANEOUS
     Route: 058
     Dates: start: 20050221
  2. RAMIPRIL [Suspect]
     Indication: HYPERTENSION
     Dosage: 10 MG, QD, ORAL
     Route: 048
     Dates: start: 20041201, end: 20050306
  3. AMLODIPINE BESYLATE (AMLODIPINE BESYLATE) [Concomitant]
  4. HYDROXYZINE HCL [Concomitant]
  5. CANDESARTAN (CANDESARTAN) [Concomitant]

REACTIONS (6)
  - ABDOMINAL DISTENSION [None]
  - BLOOD CREATININE INCREASED [None]
  - INFLAMMATION [None]
  - INTESTINAL OBSTRUCTION [None]
  - PANCREATITIS [None]
  - WEIGHT DECREASED [None]
